FAERS Safety Report 9839734 (Version 2)
Quarter: 2014Q1

REPORT INFORMATION
  Report Type: Spontaneous
  Country: US (occurrence: US)
  Receive Date: 20140124
  Receipt Date: 20140217
  Transmission Date: 20141002
  Serious: Yes (Hospitalization)
  Sender: FDA-Public Use
  Company Number: US-BIOGENIDEC-2014BI003706

PATIENT
  Age: 36 Year
  Sex: Female

DRUGS (12)
  1. TECFIDERA [Suspect]
     Indication: MULTIPLE SCLEROSIS
     Route: 048
     Dates: start: 20131024, end: 20131224
  2. ALBUTEROL INHALER [Concomitant]
  3. BACLOFEN [Concomitant]
  4. FLEXERIL [Concomitant]
  5. DOCUSATE [Concomitant]
  6. FLONASE [Concomitant]
  7. NORCO [Concomitant]
  8. MODAFINIL [Concomitant]
  9. ZONEGRAN [Concomitant]
  10. PREDNISONE [Concomitant]
  11. AMITRIPTYLINE [Concomitant]
  12. METHYLPREDNISOLONE [Concomitant]

REACTIONS (2)
  - Multiple sclerosis relapse [Recovered/Resolved]
  - Cystitis [Not Recovered/Not Resolved]
